FAERS Safety Report 24346760 (Version 2)
Quarter: 2024Q3

REPORT INFORMATION
  Report Type: Report from Study
  Country: US (occurrence: US)
  Receive Date: 20240921
  Receipt Date: 20240926
  Transmission Date: 20241016
  Serious: Yes (Hospitalization)
  Sender: ABBVIE
  Company Number: US-ABBVIE-5929429

PATIENT
  Age: 79 Year
  Sex: Female

DRUGS (1)
  1. CREON [Suspect]
     Active Substance: PANCRELIPASE AMYLASE\PANCRELIPASE LIPASE\PANCRELIPASE PROTEASE
     Indication: Product used for unknown indication
     Dosage: DAILY DOSE AND FROM STRENGTH 24000 UNIT?FREQUENCY TEXT: 1 CAP BEFORE MEAL; 1 CAP BEFORE SNACK
     Route: 048
     Dates: start: 2024, end: 20240911

REACTIONS (3)
  - Upper limb fracture [Recovering/Resolving]
  - Weight increased [Unknown]
  - Fall [Recovered/Resolved]

NARRATIVE: CASE EVENT DATE: 20240301
